FAERS Safety Report 6266056-9 (Version None)
Quarter: 2009Q3

REPORT INFORMATION
  Report Type: 
  Country: None (occurrence: None)
  Receive Date: 20090713
  Receipt Date: 20090703
  Transmission Date: 20100115
  Serious: Yes (Other)
  Sender: FDA-Public Use
  Company Number: IT-CELGENEUS-083-20785-09070225

PATIENT
  Sex: Male

DRUGS (5)
  1. THALIDOMIDE [Suspect]
     Indication: BEHCET'S SYNDROME
     Route: 048
     Dates: start: 20060101
  2. THALIDOMIDE [Suspect]
     Route: 048
     Dates: start: 20090101
  3. ANTIDEPRESSANTS [Concomitant]
     Indication: DRUG USE FOR UNKNOWN INDICATION
     Route: 065
  4. DELTACORTENE [Concomitant]
     Indication: DRUG USE FOR UNKNOWN INDICATION
     Route: 065
  5. ASPIRIN [Concomitant]
     Indication: DRUG USE FOR UNKNOWN INDICATION
     Route: 065

REACTIONS (5)
  - BALANOPOSTHITIS [None]
  - BEHCET'S SYNDROME [None]
  - BULIMIA NERVOSA [None]
  - GYNAECOMASTIA [None]
  - OBESITY [None]
